FAERS Safety Report 5808095-5 (Version None)
Quarter: 2008Q3

REPORT INFORMATION
  Report Type: 
  Country: None (occurrence: None)
  Receive Date: 20080711
  Receipt Date: 20080701
  Transmission Date: 20090109
  Serious: Yes (Other)
  Sender: FDA-Public Use
  Company Number: MX-PFIZER INC-2008055644

PATIENT
  Age: 54 Year
  Sex: Female
  Weight: 64.5 kg

DRUGS (5)
  1. CELEBREX [Suspect]
     Indication: LUMBAR RADICULOPATHY
     Route: 048
     Dates: start: 20080507, end: 20080512
  2. LYRICA [Suspect]
     Indication: LUMBAR RADICULOPATHY
     Route: 048
     Dates: start: 20080507, end: 20080512
  3. ALLEGRA [Suspect]
  4. CAPTOPRIL [Concomitant]
     Indication: HYPERTENSION
     Route: 048
  5. VITIS VINIFERA [Concomitant]
     Indication: VENOUS INSUFFICIENCY
     Route: 048
     Dates: start: 20080507, end: 20080512

REACTIONS (5)
  - BALANCE DISORDER [None]
  - CHEST PAIN [None]
  - DIZZINESS [None]
  - HOT FLUSH [None]
  - HYPERTENSION [None]
